FAERS Safety Report 4866247-5 (Version None)
Quarter: 2005Q4

REPORT INFORMATION
  Report Type: 
  Country: None (occurrence: None)
  Receive Date: 20051220
  Receipt Date: 20051206
  Transmission Date: 20060501
  Serious: Yes (Other)
  Sender: FDA-Public Use
  Company Number: 8013806

PATIENT
  Age: 43 Year
  Sex: Female

DRUGS (2)
  1. KEPPRA [Suspect]
     Indication: EPILEPSY
     Dates: start: 20011023
  2. KEPPRA [Suspect]
     Indication: EPILEPSY
     Dosage: 2500MG/D PO
     Route: 048
     Dates: start: 20050707

REACTIONS (2)
  - TUNNEL VISION [None]
  - VISUAL FIELD DEFECT [None]
